FAERS Safety Report 26019454 (Version 1)
Quarter: 2025Q4

REPORT INFORMATION
  Report Type: Spontaneous
  Country: US (occurrence: US)
  Receive Date: 20251110
  Receipt Date: 20251110
  Transmission Date: 20260117
  Serious: Yes (Hospitalization)
  Sender: CHEPLAPHARM
  Company Number: US-CHEPLA-2025012665

PATIENT
  Age: 49 Year
  Sex: Male
  Weight: 89.8 kg

DRUGS (11)
  1. CLONAZEPAM [Suspect]
     Active Substance: CLONAZEPAM
  2. OXYCODONE [Suspect]
     Active Substance: OXYCODONE
  3. MORPHINE [Suspect]
     Active Substance: MORPHINE
  4. LUMRYZ [Suspect]
     Active Substance: SODIUM OXYBATE
     Indication: Cataplexy
     Dosage: DAILY DOSE: 4.5 GRAM
     Route: 048
     Dates: start: 20240618
  5. LUMRYZ [Suspect]
     Active Substance: SODIUM OXYBATE
     Indication: Narcolepsy
     Dosage: DAILY DOSE: 4.5 GRAM
     Route: 048
     Dates: start: 20240618
  6. LUMRYZ [Suspect]
     Active Substance: SODIUM OXYBATE
     Indication: Cataplexy
     Dosage: DAILY DOSE: 6 GRAM
     Route: 048
  7. LUMRYZ [Suspect]
     Active Substance: SODIUM OXYBATE
     Indication: Narcolepsy
     Dosage: DAILY DOSE: 6 GRAM
     Route: 048
  8. SUNOSI [Concomitant]
     Active Substance: SOLRIAMFETOL
  9. HUMIRA [Concomitant]
     Active Substance: ADALIMUMAB
  10. NEBIVOLOL [Concomitant]
     Active Substance: NEBIVOLOL
  11. VYVANSE [Concomitant]
     Active Substance: LISDEXAMFETAMINE DIMESYLATE

REACTIONS (6)
  - Initial insomnia [Recovering/Resolving]
  - Hunger [Not Recovered/Not Resolved]
  - Fatigue [Not Recovered/Not Resolved]
  - Drug interaction [Unknown]
  - Nausea [Recovered/Resolved]
  - Wrong technique in product usage process [Recovered/Resolved]

NARRATIVE: CASE EVENT DATE: 20240601
